FAERS Safety Report 6969278-4 (Version None)
Quarter: 2010Q3

REPORT INFORMATION
  Report Type: 
  Country: None (occurrence: None)
  Receive Date: 20100902
  Receipt Date: 20100830
  Transmission Date: 20110219
  Serious: Yes (Life-Threatening, Hospitalization)
  Sender: FDA-Public Use
  Company Number: 2010SP046343

PATIENT
  Age: 28 Year
  Sex: Female

DRUGS (7)
  1. BETAMETHASONE SODIUM PHOSPHATE [Suspect]
     Indication: PRODUCT USED FOR UNKNOWN INDICATION
     Dosage: 1 DF;ONCE;IM
     Route: 030
     Dates: start: 20060101
  2. VANCOMYCIN [Suspect]
     Indication: ANTIBIOTIC PROPHYLAXIS
     Dosage: 1 GM;ONCE;IV
     Route: 042
     Dates: start: 20060101
  3. MIDAZOLAM (OTHER MANUFACTURER)  (MIDAZOLAM / 00634101/) [Suspect]
     Indication: INDUCTION OF ANAESTHESIA
     Dosage: ONCE; IV
     Route: 042
     Dates: start: 20060101
  4. KETAMINE (OTHER MFR) (KETAMINE) [Suspect]
     Indication: INDUCTION OF ANAESTHESIA
     Dosage: ONCE; IV
     Route: 042
     Dates: start: 20060101
  5. DROPERIDOL [Suspect]
     Indication: INDUCTION OF ANAESTHESIA
     Dosage: ONCE;IV
     Route: 042
     Dates: start: 20060101
  6. SUFENTANIL (OTHER MFR)  (SUFENTANIL) [Suspect]
     Indication: ANAESTHESIA
     Dosage: ONCE;IV
     Route: 042
     Dates: start: 20060101
  7. PROPOFOL [Suspect]
     Indication: ANAESTHESIA
     Dosage: ONCE;IV
     Route: 042
     Dates: start: 20060101

REACTIONS (1)
  - ANAPHYLACTOID SHOCK [None]
